FAERS Safety Report 4607768-X (Version None)
Quarter: 2005Q1

REPORT INFORMATION
  Report Type: 
  Country: None (occurrence: None)
  Receive Date: 20050314
  Receipt Date: 20050303
  Transmission Date: 20050727
  Serious: Yes (Death, Hospitalization)
  Sender: FDA-Public Use
  Company Number: JP-GLAXOSMITHKLINE-B0373654A

PATIENT
  Age: 69 Year
  Sex: Male

DRUGS (11)
  1. EPIVIR [Suspect]
     Indication: HIV INFECTION
     Dosage: 150MG TWICE PER DAY
     Route: 048
     Dates: start: 20020724, end: 20030827
  2. ZERIT [Suspect]
     Indication: HIV INFECTION
     Route: 048
     Dates: start: 20020724, end: 20030827
  3. STOCRIN [Suspect]
     Indication: HIV INFECTION
     Dosage: 400MG PER DAY
     Route: 048
     Dates: start: 20020724, end: 20030827
  4. KLARICID [Concomitant]
     Dosage: 400MG TWICE PER DAY
     Route: 048
     Dates: start: 20020531, end: 20020607
  5. KLARICID [Concomitant]
     Dosage: 100MG THREE TIMES PER DAY
     Route: 048
     Dates: start: 20020608, end: 20020805
  6. KLARICID [Concomitant]
     Indication: INFECTION PROPHYLAXIS
     Dosage: 400MG TWICE PER DAY
     Route: 048
     Dates: start: 20020806, end: 20030827
  7. BAKTAR [Concomitant]
     Indication: INFECTION PROPHYLAXIS
     Dosage: 1000MG PER DAY
     Route: 048
     Dates: start: 20030401, end: 20030825
  8. GASTER D [Concomitant]
     Dosage: 10MG TWICE PER DAY
     Route: 048
     Dates: start: 20030401, end: 20030825
  9. RENIVACE [Concomitant]
     Indication: HYPERTENSION
     Dosage: 5MG PER DAY
     Route: 048
     Dates: start: 20030401, end: 20030827
  10. HARNAL [Concomitant]
     Indication: BENIGN PROSTATIC HYPERPLASIA
     Dosage: .2MG PER DAY
     Route: 048
     Dates: start: 20030401, end: 20030827
  11. AMARYL [Concomitant]
     Indication: DIABETES MELLITUS
     Dosage: 2 PER DAY
     Route: 048
     Dates: start: 20030701, end: 20030827

REACTIONS (4)
  - ACUTE MYOCARDIAL INFARCTION [None]
  - ANOREXIA [None]
  - CARDIO-RESPIRATORY ARREST [None]
  - DEPRESSED LEVEL OF CONSCIOUSNESS [None]
